FAERS Safety Report 17255199 (Version 1)
Quarter: 2020Q1

REPORT INFORMATION
  Report Type: Spontaneous
  Country: US (occurrence: US)
  Receive Date: 20200110
  Receipt Date: 20200110
  Transmission Date: 20200409
  Serious: Yes (Hospitalization, Other)
  Sender: FDA-Public Use
  Company Number: US-EMCURE PHARMACEUTICALS LTD-2019-EPL-1285

PATIENT
  Age: 84 Year
  Sex: Female

DRUGS (8)
  1. VERAPAMIL HYDROCHLORIDE. [Suspect]
     Active Substance: VERAPAMIL HYDROCHLORIDE
     Indication: PRODUCT USED FOR UNKNOWN INDICATION
     Dosage: 120 MILLIGRAM, DAILY
  2. DUONEB [Concomitant]
     Active Substance: ALBUTEROL SULFATE\IPRATROPIUM BROMIDE
     Dosage: UNK, PRN
  3. PROPRANOLOL [Suspect]
     Active Substance: PROPRANOLOL HYDROCHLORIDE
     Indication: PRODUCT USED FOR UNKNOWN INDICATION
     Dosage: 40 MILLIGRAM, TWICE DAILY
  4. COUMADIN [Concomitant]
     Active Substance: WARFARIN SODIUM
     Dosage: UNK
  5. TINACTIN [Concomitant]
     Active Substance: TOLNAFTATE
     Dosage: UNK, BID
  6. CEFAZOLIN [Concomitant]
     Active Substance: CEFAZOLIN
     Indication: INTERTRIGO
     Dosage: UNK, Q8H, (EVERY 8 HOURS)
     Route: 042
  7. FLUCONAZOLE. [Interacting]
     Active Substance: FLUCONAZOLE
     Indication: INTERTRIGO
     Dosage: 100 MILLIGRAM, DAILY
     Route: 048
  8. CEPHALEXIN                         /00145501/ [Concomitant]
     Active Substance: CEPHALEXIN
     Indication: INTERTRIGO
     Dosage: 500 MILLIGRAM, BID (TWICE DAILY)

REACTIONS (7)
  - Toxicity to various agents [Unknown]
  - Atrioventricular block first degree [Unknown]
  - Metabolic acidosis [Unknown]
  - Drug interaction [Unknown]
  - Acute kidney injury [Unknown]
  - Sinus bradycardia [Unknown]
  - Hyperkalaemia [Unknown]
